FAERS Safety Report 4815753-8 (Version None)
Quarter: 2005Q4

REPORT INFORMATION
  Report Type: 
  Country: None (occurrence: None)
  Receive Date: 20051006
  Receipt Date: 20041207
  Transmission Date: 20060501
  Serious: Yes (Hospitalization)
  Sender: FDA-Public Use
  Company Number: 12795142

PATIENT
  Age: 53 Year
  Sex: Female

DRUGS (4)
  1. CETUXIMAB [Suspect]
     Indication: COLORECTAL CANCER
     Dosage: IVD
     Route: 041
     Dates: start: 20041104
  2. IRINOTECAN HCL [Suspect]
     Indication: COLORECTAL CANCER
     Dosage: IV
     Route: 042
     Dates: start: 20041104
  3. LEUCOVORIN CALCIUM [Suspect]
     Indication: COLORECTAL CANCER
     Dates: start: 20041104
  4. FLUOROURACIL [Suspect]
     Indication: COLORECTAL CANCER
     Dates: start: 20041104

REACTIONS (4)
  - BACTERIA URINE IDENTIFIED [None]
  - DIARRHOEA [None]
  - FEBRILE NEUTROPENIA [None]
  - STAPHYLOCOCCAL INFECTION [None]
